FAERS Safety Report 19381692 (Version 1)
Quarter: 2021Q2

REPORT INFORMATION
  Report Type: Spontaneous
  Country: US (occurrence: US)
  Receive Date: 20210607
  Receipt Date: 20210607
  Transmission Date: 20210717
  Serious: No
  Sender: FDA-Public Use
  Company Number: US-TORRENT-00011122

PATIENT
  Age: 58 Year
  Sex: Female
  Weight: 124 kg

DRUGS (2)
  1. CITALOPRAM HYDROBROMIDE TABLETS [Suspect]
     Active Substance: CITALOPRAM HYDROBROMIDE
     Indication: PRODUCT USED FOR UNKNOWN INDICATION
     Dosage: UNKNOWN
  2. DIFLUCAN [Concomitant]
     Active Substance: FLUCONAZOLE
     Indication: URINARY TRACT INFECTION
     Dosage: 1 DIFLUCAN TABLET AND THEN ?TOOK THE OTHER ANTIBIOTIC FOR 5 DAYS

REACTIONS (5)
  - Asthma [Unknown]
  - Urinary tract infection [Unknown]
  - Poor quality sleep [Unknown]
  - Abnormal dreams [Recovered/Resolved]
  - Cough [Unknown]

NARRATIVE: CASE EVENT DATE: 2021
